FAERS Safety Report 4657754-9 (Version None)
Quarter: 2005Q2

REPORT INFORMATION
  Report Type: 
  Country: None (occurrence: None)
  Receive Date: 20050510
  Receipt Date: 20050322
  Transmission Date: 20051028
  Serious: Yes (Death, Life-Threatening, Other)
  Sender: FDA-Public Use
  Company Number: JP-BRISTOL-MYERS SQUIBB COMPANY-12910196

PATIENT
  Age: 69 Year
  Sex: Male

DRUGS (14)
  1. TAXOL [Suspect]
     Indication: NON-SMALL CELL LUNG CANCER
     Route: 042
     Dates: start: 20050314, end: 20050314
  2. PARAPLATIN [Suspect]
     Indication: NON-SMALL CELL LUNG CANCER
     Route: 042
     Dates: start: 20050314, end: 20050314
  3. STARSIS [Concomitant]
     Route: 048
  4. BUP-4 [Concomitant]
     Route: 048
  5. FLIVAS [Concomitant]
     Route: 048
  6. SENNOSIDE [Concomitant]
     Route: 048
  7. NORVASC [Concomitant]
     Route: 048
  8. BLOPRESS [Concomitant]
     Route: 048
  9. OMEPRAL [Concomitant]
     Route: 048
  10. FERROMIA [Concomitant]
     Route: 048
  11. LAXOBERON [Concomitant]
     Route: 048
     Dates: start: 20050314
  12. ZOFRAN [Concomitant]
     Route: 041
     Dates: start: 20050314
  13. POLARAMINE [Concomitant]
     Route: 041
     Dates: start: 20050314
  14. ORGADRONE [Concomitant]
     Route: 042
     Dates: start: 20050314

REACTIONS (16)
  - ACUTE RESPIRATORY DISTRESS SYNDROME [None]
  - ANOREXIA [None]
  - BLOOD CREATININE INCREASED [None]
  - BLOOD GLUCOSE INCREASED [None]
  - BLOOD LACTATE DEHYDROGENASE INCREASED [None]
  - BLOOD UREA INCREASED [None]
  - CARDIAC ARREST [None]
  - DEPRESSED LEVEL OF CONSCIOUSNESS [None]
  - DIALYSIS [None]
  - DISSEMINATED INTRAVASCULAR COAGULATION [None]
  - HAEMOGLOBIN DECREASED [None]
  - HYPERKALAEMIA [None]
  - MULTI-ORGAN FAILURE [None]
  - PNEUMONIA [None]
  - SEPTIC SHOCK [None]
  - WHITE BLOOD CELL COUNT DECREASED [None]
